FAERS Safety Report 5228866-6 (Version None)
Quarter: 2007Q1

REPORT INFORMATION
  Report Type: 
  Country: None (occurrence: None)
  Receive Date: 20070205
  Receipt Date: 20070123
  Transmission Date: 20070707
  Serious: Yes (Other)
  Sender: FDA-Public Use
  Company Number: US-ROCHE-479700

PATIENT
  Age: 57 Year
  Sex: Female
  Weight: 54.4 kg

DRUGS (4)
  1. PEGASYS [Suspect]
     Dosage: DOSE WAS DECREASED TO 135 MCG ON 30 OCTOBER 2006 FOR NEXT 4 DOSES, DUE TO DECREASE IN WHITE BLOOD C+
     Route: 065
     Dates: start: 20061030
  2. PEGASYS [Suspect]
     Dosage: INITIAL DOSE.
     Route: 065
  3. COPEGUS [Suspect]
     Route: 065
  4. NEUPOGEN [Concomitant]
     Dosage: INITIALLY TWICE A WEEK BUT MORE RECENTLY ONCE A WEEK.
     Dates: start: 20061102

REACTIONS (5)
  - ASTHENIA [None]
  - OPHTHALMOLOGICAL EXAMINATION ABNORMAL [None]
  - RASH [None]
  - VISUAL ACUITY REDUCED [None]
  - WHITE BLOOD CELL COUNT DECREASED [None]
